FAERS Safety Report 7214317-9 (Version None)
Quarter: 2011Q1

REPORT INFORMATION
  Report Type: 
  Country: None (occurrence: None)
  Receive Date: 20110107
  Receipt Date: 20101227
  Transmission Date: 20110831
  Serious: Yes (Hospitalization)
  Sender: FDA-Public Use
  Company Number: PHHY2010CH88150

PATIENT
  Age: 6 Year
  Sex: Male

DRUGS (4)
  1. BENOCTEN [Suspect]
     Indication: SLEEP DISORDER
     Dosage: UNK
     Dates: start: 20101116
  2. RITALIN LA [Suspect]
     Indication: ATTENTION DEFICIT/HYPERACTIVITY DISORDER
     Dosage: 60 MG, QD
  3. BEXIN [Suspect]
     Indication: COUGH
     Dosage: UNK
     Dates: start: 20101116
  4. RISPERDAL [Suspect]
     Indication: ATTENTION DEFICIT/HYPERACTIVITY DISORDER
     Dosage: UNK
     Dates: end: 20101115

REACTIONS (6)
  - DRUG INTERACTION [None]
  - PYREXIA [None]
  - TREMOR [None]
  - HALLUCINATION, VISUAL [None]
  - AGITATION [None]
  - COUGH [None]
